FAERS Safety Report 5659083-3 (Version None)
Quarter: 2008Q1

REPORT INFORMATION
  Report Type: 
  Country: None (occurrence: None)
  Receive Date: 20080219
  Receipt Date: 20071126
  Transmission Date: 20080703
  Serious: No
  Sender: FDA-Public Use
  Company Number: WAES 0710USA01279

PATIENT
  Age: 32 Year
  Sex: Female
  Weight: 115.6672 kg

DRUGS (1)
  1. JANUVIA [Suspect]
     Indication: TYPE 2 DIABETES MELLITUS
     Dosage: 100 MG/DAILY/PO
     Route: 048
     Dates: start: 20070926

REACTIONS (4)
  - CONFUSIONAL STATE [None]
  - HYPERHIDROSIS [None]
  - NAUSEA [None]
  - PRURITUS GENERALISED [None]
